FAERS Safety Report 15754925 (Version 1)
Quarter: 2018Q4

REPORT INFORMATION
  Report Type: Spontaneous
  Country: SE (occurrence: SE)
  Receive Date: 20181224
  Receipt Date: 20181224
  Transmission Date: 20190205
  Serious: Yes (Congenital Anomaly)
  Sender: FDA-Public Use
  Company Number: SE-ACCORD-097114

PATIENT

DRUGS (3)
  1. LAMOTRIGINE. [Suspect]
     Active Substance: LAMOTRIGINE
     Indication: EPILEPSY
     Dosage: ALSO TAKEN 500 MG TO 12-OCT-2017,250 MG 2
     Route: 064
     Dates: start: 20171013
  2. FOLACIN [Concomitant]
     Dates: start: 201708
  3. LEVETIRACETAM. [Suspect]
     Active Substance: LEVETIRACETAM
     Indication: EPILEPSY
     Dosage: 1500MG 2
     Route: 064
     Dates: start: 201708

REACTIONS (4)
  - Dandy-Walker syndrome [Unknown]
  - Foetal malformation [Unknown]
  - Umbilical hernia [Unknown]
  - Foetal exposure during pregnancy [Unknown]

NARRATIVE: CASE EVENT DATE: 20171102
